FAERS Safety Report 13035851 (Version 1)
Quarter: 2016Q4

REPORT INFORMATION
  Report Type: Spontaneous
  Country: US (occurrence: US)
  Receive Date: 20161216
  Receipt Date: 20161216
  Transmission Date: 20170207
  Serious: No
  Sender: FDA-Public Use
  Company Number: US-PFIZER INC-2016582152

PATIENT
  Age: 5 Year
  Sex: Male

DRUGS (4)
  1. QUILLIVANT XR [Suspect]
     Active Substance: METHYLPHENIDATE HYDROCHLORIDE
     Indication: ATTENTION DEFICIT/HYPERACTIVITY DISORDER
     Dosage: 4 ML, 1X/DAY, IN THE MORNING
     Route: 048
     Dates: start: 20160915
  2. QUILLIVANT XR [Suspect]
     Active Substance: METHYLPHENIDATE HYDROCHLORIDE
     Indication: SENSORY PROCESSING DISORDER
     Dosage: 3 ML, 1X/DAY, EVERY MORNING
     Route: 048
     Dates: start: 2016
  3. QUILLIVANT XR [Suspect]
     Active Substance: METHYLPHENIDATE HYDROCHLORIDE
     Dosage: 2 ML, 1X/DAY
     Route: 048
     Dates: start: 2016
  4. QUILLIVANT XR [Suspect]
     Active Substance: METHYLPHENIDATE HYDROCHLORIDE
     Dosage: 2.5 ML, 1X/DAY
     Dates: start: 2016

REACTIONS (6)
  - Drug ineffective [Recovered/Resolved]
  - Staring [Recovered/Resolved]
  - Decreased appetite [Recovering/Resolving]
  - Product use issue [Unknown]
  - Lethargy [Recovered/Resolved]
  - Drug prescribing error [Unknown]

NARRATIVE: CASE EVENT DATE: 2016
